FAERS Safety Report 5073437-8 (Version None)
Quarter: 2006Q3

REPORT INFORMATION
  Report Type: 
  Country: None (occurrence: None)
  Receive Date: 20060803
  Receipt Date: 20060724
  Transmission Date: 20061208
  Serious: Yes (Other)
  Sender: FDA-Public Use
  Company Number: 2006089754

PATIENT
  Age: 39 Year
  Sex: Male

DRUGS (1)
  1. TOLTERODINE TARTRATE [Suspect]
     Indication: HYPERTONIC BLADDER
     Dosage: 4 MG, ORAL
     Route: 048
     Dates: start: 20060627, end: 20060711

REACTIONS (5)
  - FLUID RETENTION [None]
  - GENERALISED OEDEMA [None]
  - OLIGURIA [None]
  - URINE OUTPUT DECREASED [None]
  - WEIGHT INCREASED [None]
